FAERS Safety Report 11471771 (Version 1)
Quarter: 2015Q3

REPORT INFORMATION
  Report Type: Spontaneous
  Country: US (occurrence: US)
  Receive Date: 20150908
  Receipt Date: 20150908
  Transmission Date: 20151125
  Serious: No
  Sender: FDA-Public Use
  Company Number: US-BRECKENRIDGE PHARMACEUTICAL, INC.-1041684

PATIENT
  Age: 62 Year
  Sex: Male
  Weight: 102.27 kg

DRUGS (5)
  1. RANITIDINE [Concomitant]
     Active Substance: RANITIDINE\RANITIDINE HYDROCHLORIDE
  2. CLONAZEPAM. [Concomitant]
     Active Substance: CLONAZEPAM
  3. LAMICTAL [Concomitant]
     Active Substance: LAMOTRIGINE
  4. DULOXETINE DELAYED-RELEASE [Suspect]
     Active Substance: DULOXETINE
     Indication: NEURALGIA
     Route: 048
     Dates: start: 20150615, end: 20150622
  5. LANTUS [Concomitant]
     Active Substance: INSULIN GLARGINE

REACTIONS (5)
  - Irritability [None]
  - Anxiety [Recovered/Resolved]
  - Drug ineffective [None]
  - Depression [None]
  - Abdominal rigidity [None]

NARRATIVE: CASE EVENT DATE: 20150615
